FAERS Safety Report 16412974 (Version 1)
Quarter: 2019Q2

REPORT INFORMATION
  Report Type: Spontaneous
  Country: IT (occurrence: IT)
  Receive Date: 20190611
  Receipt Date: 20190611
  Transmission Date: 20190711
  Serious: Yes (Other)
  Sender: FDA-Public Use
  Company Number: IT-AUROBINDO-AUR-APL-2019-032234

PATIENT

DRUGS (2)
  1. CARBOPLATIN. [Suspect]
     Active Substance: CARBOPLATIN
     Indication: BREAST CANCER METASTATIC
     Dosage: 213 MILLIGRAM, CYCLICAL
     Route: 042
     Dates: start: 20190509
  2. GEMCITABINE [Suspect]
     Active Substance: GEMCITABINE\GEMCITABINE HYDROCHLORIDE
     Indication: BREAST CANCER METASTATIC
     Dosage: 1252 MILLIGRAM, CYCLICAL
     Route: 042
     Dates: start: 20190509, end: 20190509

REACTIONS (3)
  - Jaundice [Unknown]
  - Transaminases increased [Unknown]
  - Chromaturia [Unknown]

NARRATIVE: CASE EVENT DATE: 20190521
